FAERS Safety Report 5427161-X (Version None)
Quarter: 2007Q3

REPORT INFORMATION
  Report Type: 
  Country: None (occurrence: None)
  Receive Date: 20070828
  Receipt Date: 20070824
  Transmission Date: 20080115
  Serious: Yes (Death, Life-Threatening, Hospitalization, Disabling, Other)
  Sender: FDA-Public Use
  Company Number: US-BAYER-200711758BWH

PATIENT
  Age: 56 Year
  Sex: Male

DRUGS (14)
  1. TRASYLOL [Suspect]
     Indication: CORONARY ARTERY BYPASS
     Dosage: UNIT DOSE: 10000 KIU
     Route: 042
     Dates: start: 20060619, end: 20060619
  2. TRASYLOL [Suspect]
     Dosage: UNIT DOSE: 2000000 KIU
     Route: 042
     Dates: start: 20060619, end: 20060619
  3. LASIX [Concomitant]
  4. ASPIRIN [Concomitant]
  5. ATENOLOL [Concomitant]
  6. LOSARTAN POTASSIUM [Concomitant]
  7. FELODIPINE [Concomitant]
  8. ALDACTONE [Concomitant]
  9. SIMVASTATIN [Concomitant]
  10. PRILOSEC [Concomitant]
  11. DOXAZOSIN MESYLATE [Concomitant]
  12. SULINDAC [Concomitant]
  13. FLUOXETINE [Concomitant]
  14. FLONASE [Concomitant]

REACTIONS (10)
  - ATRIAL FIBRILLATION [None]
  - BLOOD CREATININE INCREASED [None]
  - BLOOD POTASSIUM INCREASED [None]
  - BRAIN DEATH [None]
  - DEATH [None]
  - FEELING ABNORMAL [None]
  - LOSS OF CONSCIOUSNESS [None]
  - RENAL IMPAIRMENT [None]
  - SYNCOPE [None]
  - WOUND COMPLICATION [None]
